FAERS Safety Report 5254409-7 (Version None)
Quarter: 2007Q1

REPORT INFORMATION
  Report Type: 
  Country: None (occurrence: None)
  Receive Date: 20070302
  Receipt Date: 20070222
  Transmission Date: 20070707
  Serious: Yes (Other)
  Sender: FDA-Public Use
  Company Number: KP-ROXANE LABORATORIES, INC-2007-BP-02571RO

PATIENT
  Age: 58 Year
  Sex: Female

DRUGS (5)
  1. FLUCONAZOLE [Suspect]
     Indication: TINEA PEDIS
     Dosage: 150 MG/WEEK
  2. AMLODIPINE [Concomitant]
     Indication: HYPERTENSION
  3. HYDROCHLOROTHIAZIDE [Concomitant]
     Indication: HYPERTENSION
  4. METOCLOPRAMIDE [Concomitant]
  5. LEVOSULPIRIDE [Concomitant]

REACTIONS (5)
  - DYSPEPSIA [None]
  - GENERALISED OEDEMA [None]
  - NAUSEA [None]
  - NEPHROPATHY [None]
  - NEPHROTIC SYNDROME [None]
